FAERS Safety Report 6137133-8 (Version None)
Quarter: 2009Q1

REPORT INFORMATION
  Report Type: 
  Country: None (occurrence: None)
  Receive Date: 20090330
  Receipt Date: 20090322
  Transmission Date: 20090719
  Serious: Yes (Other)
  Sender: FDA-Public Use
  Company Number: US-ELI_LILLY_AND_COMPANY-US200901000261

PATIENT
  Sex: Male

DRUGS (3)
  1. HUMALOG [Suspect]
  2. HUMALOG [Suspect]
  3. HUMULIN N [Suspect]

REACTIONS (1)
  - CARDIAC PACEMAKER INSERTION [None]
